FAERS Safety Report 15890249 (Version 3)
Quarter: 2019Q2

REPORT INFORMATION
  Report Type: Report from Study
  Country: None (occurrence: US)
  Receive Date: 20190130
  Receipt Date: 20190523
  Transmission Date: 20190711
  Serious: Yes (Hospitalization, Other)
  Sender: FDA-Public Use
  Company Number: US-ABBVIE-19K-163-2639742-00

PATIENT
  Age: 64 Year
  Sex: Male
  Weight: 79.45 kg

DRUGS (1)
  1. HUMIRA [Suspect]
     Active Substance: ADALIMUMAB
     Indication: PSORIATIC ARTHROPATHY
     Dosage: STOPPED IN -JAN-2019 OR -FEB-2019
     Route: 058
     Dates: start: 2014, end: 2019

REACTIONS (5)
  - Skin erosion [Recovering/Resolving]
  - Limb injury [Recovering/Resolving]
  - Oedema [Unknown]
  - Pain in extremity [Recovering/Resolving]
  - Hypotension [Unknown]

NARRATIVE: CASE EVENT DATE: 2018
